FAERS Safety Report 6552337-8 (Version None)
Quarter: 2010Q1

REPORT INFORMATION
  Report Type: 
  Country: None (occurrence: None)
  Receive Date: 20100126
  Receipt Date: 20100115
  Transmission Date: 20100710
  Serious: Yes (Life-Threatening, Other)
  Sender: FDA-Public Use
  Company Number: US-SANOFI-AVENTIS-2010SA000934

PATIENT
  Age: 74 Year
  Sex: Male
  Weight: 82 kg

DRUGS (6)
  1. PLAVIX [Suspect]
     Indication: PERCUTANEOUS CORONARY INTERVENTION
     Dosage: FOUR CAPSULES PRE-PROCEDURE AT 13:39
     Route: 048
     Dates: start: 20060718, end: 20060718
  2. PLAVIX [Suspect]
     Dosage: 4 CAPSULES POST-PROCEDURE AT 15:15
     Route: 048
     Dates: start: 20060718, end: 20060718
  3. PLAVIX [Suspect]
     Route: 048
     Dates: start: 20060714, end: 20060718
  4. INVESTIGATIONAL DRUG [Suspect]
     Indication: PERCUTANEOUS CORONARY INTERVENTION
     Route: 040
     Dates: start: 20060718, end: 20060718
  5. INVESTIGATIONAL DRUG [Suspect]
     Route: 041
     Dates: start: 20060718, end: 20060718
  6. HEPARIN [Concomitant]
     Route: 065
     Dates: start: 20060718, end: 20060718

REACTIONS (1)
  - HAEMODYNAMIC INSTABILITY [None]
